FAERS Safety Report 26102435 (Version 1)
Quarter: 2025Q4

REPORT INFORMATION
  Report Type: Spontaneous
  Country: US (occurrence: US)
  Receive Date: 20251128
  Receipt Date: 20251128
  Transmission Date: 20260117
  Serious: No
  Sender: SANOFI AVENTIS
  Company Number: US-SA-2025SA354980

PATIENT
  Age: 85 Year
  Sex: Female

DRUGS (1)
  1. DUPIXENT [Suspect]
     Active Substance: DUPILUMAB
     Indication: Dermatitis atopic
     Dosage: 600 MG, 1X
     Route: 058
     Dates: start: 20251121

REACTIONS (8)
  - Abdominal pain upper [Unknown]
  - Dermatitis atopic [Unknown]
  - Pain [Unknown]
  - Skin burning sensation [Unknown]
  - Urticaria [Unknown]
  - Eye pruritus [Unknown]
  - Eye irritation [Unknown]
  - Skin irritation [Unknown]

NARRATIVE: CASE EVENT DATE: 20251101
